FAERS Safety Report 13680079 (Version 3)
Quarter: 2017Q3

REPORT INFORMATION
  Report Type: Spontaneous
  Country: US (occurrence: US)
  Receive Date: 20170622
  Receipt Date: 20170731
  Transmission Date: 20171127
  Serious: Yes (Hospitalization, Other)
  Sender: FDA-Public Use
  Company Number: US-ALEXION PHARMACEUTICALS INC-A201706765

PATIENT
  Age: 46 Year
  Sex: Male

DRUGS (3)
  1. SOLIRIS [Suspect]
     Active Substance: ECULIZUMAB
     Dosage: 900 MG, QW
     Route: 042
     Dates: start: 201705
  2. SOLIRIS [Suspect]
     Active Substance: ECULIZUMAB
     Indication: HAEMOLYTIC URAEMIC SYNDROME
     Dosage: UNK
     Route: 042
     Dates: start: 201409, end: 201410
  3. SOLIRIS [Suspect]
     Active Substance: ECULIZUMAB
     Dosage: 1200 MG, QW
     Route: 042
     Dates: start: 20170720

REACTIONS (10)
  - Device related infection [Not Recovered/Not Resolved]
  - Thrombocytopenia [Unknown]
  - Inappropriate schedule of drug administration [Not Recovered/Not Resolved]
  - Enterococcal sepsis [Not Recovered/Not Resolved]
  - Confusional state [Not Recovered/Not Resolved]
  - Anaemia [Unknown]
  - Fluid retention [Unknown]
  - Pneumonia [Not Recovered/Not Resolved]
  - Seizure [Unknown]
  - Haemolytic uraemic syndrome [Not Recovered/Not Resolved]

NARRATIVE: CASE EVENT DATE: 201705
